FAERS Safety Report 9030496 (Version 2)
Quarter: 2013Q1

REPORT INFORMATION
  Report Type: Report from Study
  Country: US (occurrence: US)
  Receive Date: 20130122
  Receipt Date: 20130206
  Transmission Date: 20140127
  Serious: No
  Sender: FDA-Public Use
  Company Number: US-VERTEX PHARMACEUTICALS INC.-2013-000919

PATIENT
  Age: 53 None
  Sex: Male
  Weight: 69 kg

DRUGS (3)
  1. VX-950 (TELAPREVIR) [Suspect]
     Indication: HEPATITIS C
     Dosage: 750 MG, TID
     Route: 048
     Dates: start: 20130111
  2. PEGASYS [Suspect]
     Indication: HEPATITIS C
     Dosage: 180 ?G, QW
     Route: 058
     Dates: start: 20130111
  3. RIBASPHERE [Suspect]
     Indication: HEPATITIS C
     Dosage: 400 MG AM/600 MG PM
     Route: 048
     Dates: start: 20130111

REACTIONS (3)
  - Influenza like illness [Unknown]
  - Injection site erythema [Unknown]
  - Anorectal discomfort [Unknown]
